FAERS Safety Report 8960773 (Version 1)
Quarter: 2012Q4

REPORT INFORMATION
  Report Type: 
  Country: GB (occurrence: GB)
  Receive Date: 20121212
  Receipt Date: 20121212
  Transmission Date: 20130627
  Serious: Yes (Hospitalization)
  Sender: FDA-Public Use
  Company Number: GB-WATSON-2012-21948

PATIENT
  Age: 54 Year

DRUGS (13)
  1. LEVETIRACETAM (UNKNOWN) [Suspect]
     Indication: EPILEPSY
     Dosage: 1 g, bid
     Route: 048
  2. CIPROFLOXACIN HYDROCHLORIDE (UNKNOWN) [Suspect]
     Indication: PRODUCT USED FOR UNKNOWN INDICATION
     Dosage: Unknown
     Route: 048
     Dates: start: 20121027, end: 20121028
  3. NITROFURANTOIN [Suspect]
     Indication: PRODUCT USED FOR UNKNOWN INDICATION
     Dosage: 100 mg, qid
     Route: 048
     Dates: start: 20121028, end: 20121029
  4. TRIMETHOPRIM [Suspect]
     Indication: PRODUCT USED FOR UNKNOWN INDICATION
     Dosage: 200 mg, bid
     Route: 048
     Dates: start: 20121029, end: 20121030
  5. TOPIRAMATE [Concomitant]
     Indication: EPILEPSY
     Dosage: 50 mg, bid
     Route: 048
  6. LOPERAMIDE [Concomitant]
     Indication: PRODUCT USED FOR UNKNOWN INDICATION
     Dosage: unknown
     Route: 048
     Dates: start: 20121027, end: 20121027
  7. OMEPRAZOLE [Concomitant]
     Indication: PRODUCT USED FOR UNKNOWN INDICATION
     Dosage: 40 mg, daily
     Route: 042
     Dates: start: 20121030
  8. DOMPERIDONE [Concomitant]
     Indication: PRODUCT USED FOR UNKNOWN INDICATION
     Dosage: 20 mg, tid
     Route: 048
     Dates: start: 20121030
  9. PARACETAMOL [Concomitant]
     Indication: PRODUCT USED FOR UNKNOWN INDICATION
     Dosage: 1 g, as necessary
     Route: 048
     Dates: start: 20121029
  10. CHLORPHENAMINE [Concomitant]
     Indication: PRODUCT USED FOR UNKNOWN INDICATION
     Dosage: 4 mg, tid
     Route: 048
     Dates: start: 20121029
  11. CYCLIZINE [Concomitant]
     Indication: PRODUCT USED FOR UNKNOWN INDICATION
     Dosage: 50 mg, tid
     Route: 065
     Dates: start: 20121028, end: 20121030
  12. METOCLOPRAMIDE [Concomitant]
     Indication: PRODUCT USED FOR UNKNOWN INDICATION
     Dosage: 10 mg, unknown, stat dose after rash notcied
     Dates: start: 20121030, end: 20121030
  13. COLESTYRAMINE [Concomitant]
     Indication: PRODUCT USED FOR UNKNOWN INDICATION
     Dosage: 4 g, daily
     Route: 065
     Dates: start: 20121031

REACTIONS (6)
  - Drug reaction with eosinophilia and systemic symptoms [Unknown]
  - Rash generalised [Recovering/Resolving]
  - Rash pustular [Unknown]
  - Eosinophilia [Unknown]
  - White blood cell count increased [Unknown]
  - Inflammatory marker increased [Unknown]
